FAERS Safety Report 6689985-0 (Version None)
Quarter: 2010Q2

REPORT INFORMATION
  Report Type: 
  Country: None (occurrence: None)
  Receive Date: 20100413
  Receipt Date: 20100302
  Transmission Date: 20101027
  Serious: Yes (Other)
  Sender: FDA-Public Use
  Company Number: 007478

PATIENT
  Sex: Male

DRUGS (2)
  1. KEPPRA [Suspect]
     Dosage: 500 MG
  2. LAMICTAL [Suspect]
     Indication: EPILEPSY
     Dosage: 200 MG QD ORAL, 300 MG BID ORAL

REACTIONS (2)
  - ABDOMINAL PAIN UPPER [None]
  - CONVULSION [None]
